FAERS Safety Report 4985971-7 (Version None)
Quarter: 2006Q2

REPORT INFORMATION
  Report Type: 
  Country: None (occurrence: None)
  Receive Date: 20060419
  Receipt Date: 20060407
  Transmission Date: 20061013
  Serious: Yes (Hospitalization, Other)
  Sender: FDA-Public Use
  Company Number: HQWYE701807APR06

PATIENT
  Age: 32 Year
  Sex: Male

DRUGS (3)
  1. ADVIL [Suspect]
     Dosage: 1 TABLET 1X PER 1 DAY, ORAL
     Route: 048
  2. ALCOHOL (ETHANOL, ) [Suspect]
  3. BIO-CLA (CONJUGATED LINOLEIC ACID, ) [Suspect]
     Indication: WEIGHT LOSS DIET

REACTIONS (3)
  - ALCOHOLIC PANCREATITIS [None]
  - OEDEMATOUS PANCREATITIS [None]
  - PANCREATITIS ACUTE [None]
